FAERS Safety Report 7427326-1 (Version None)
Quarter: 2011Q2

REPORT INFORMATION
  Report Type: 
  Country: None (occurrence: None)
  Receive Date: 20110420
  Receipt Date: 20110411
  Transmission Date: 20111010
  Serious: Yes (Other)
  Sender: FDA-Public Use
  Company Number: PHHY2011US30692

PATIENT
  Sex: Male

DRUGS (1)
  1. GLEEVEC [Suspect]
     Dosage: 400 MG, QD
     Route: 048
     Dates: start: 20080301

REACTIONS (4)
  - OEDEMA [None]
  - FATIGUE [None]
  - DEMENTIA ALZHEIMER'S TYPE [None]
  - CONFUSIONAL STATE [None]
